FAERS Safety Report 9303831 (Version 2)
Quarter: 2013Q3

REPORT INFORMATION
  Report Type: Spontaneous
  Country: SE (occurrence: SE)
  Receive Date: 20130522
  Receipt Date: 20130930
  Transmission Date: 20140515
  Serious: Yes (Hospitalization)
  Sender: FDA-Public Use
  Company Number: SE-GLAXOSMITHKLINE-B0893635A

PATIENT
  Age: 77 Year
  Sex: Female

DRUGS (5)
  1. VOTRIENT [Suspect]
     Indication: PRODUCT USED FOR UNKNOWN INDICATION
     Dosage: 800MG PER DAY
     Route: 065
     Dates: start: 20130502, end: 201305
  2. METHOTREXATE [Concomitant]
  3. FOLIC ACID [Concomitant]
  4. METFORMINE [Concomitant]
  5. INSULIN [Concomitant]

REACTIONS (7)
  - Posterior reversible encephalopathy syndrome [Unknown]
  - Depressed level of consciousness [Unknown]
  - Diarrhoea [Unknown]
  - Abdominal pain [Unknown]
  - Encephalopathy [Recovered/Resolved]
  - Confusional state [Recovered/Resolved]
  - Blindness [Recovered/Resolved]
